FAERS Safety Report 22521241 (Version 1)
Quarter: 2023Q2

REPORT INFORMATION
  Report Type: Spontaneous
  Country: US (occurrence: None)
  Receive Date: 20230602
  Receipt Date: 20230602
  Transmission Date: 20230721
  Serious: No
  Sender: FDA-Public Use
  Company Number: None

PATIENT
  Sex: Female

DRUGS (10)
  1. SCEMBLIX [Suspect]
     Active Substance: ASCIMINIB HYDROCHLORIDE
     Indication: Myeloid leukaemia
     Dosage: FREQUENCY : DAILY;?
     Route: 048
  2. CALCIUM [Concomitant]
     Active Substance: CALCIUM
  3. PROAIR HFA [Concomitant]
     Active Substance: ALBUTEROL SULFATE
  4. COREG [Concomitant]
     Active Substance: CARVEDILOL
  5. AMPLODIPINE [Concomitant]
  6. VITAMINS [Concomitant]
     Active Substance: VITAMINS
  7. BACLOFEN [Concomitant]
     Active Substance: BACLOFEN
  8. CEPHALEXIN [Concomitant]
     Active Substance: CEPHALEXIN
  9. FOLIC ACID [Concomitant]
     Active Substance: FOLIC ACID
  10. VITAMIN B12 [Concomitant]
     Active Substance: CYANOCOBALAMIN

REACTIONS (1)
  - Tardive dyskinesia [None]
